FAERS Safety Report 20650822 (Version 1)
Quarter: 2022Q1

REPORT INFORMATION
  Report Type: Report from Study
  Country: ES (occurrence: ES)
  Receive Date: 20220329
  Receipt Date: 20220329
  Transmission Date: 20220423
  Serious: Yes (Hospitalization)
  Sender: FDA-Public Use
  Company Number: ES-BRISTOL-MYERS SQUIBB COMPANY-BMS-2021-055949

PATIENT
  Age: 78 Year
  Sex: Female
  Weight: 60.4 kg

DRUGS (17)
  1. NIVOLUMAB [Suspect]
     Active Substance: NIVOLUMAB
     Indication: Glioblastoma
     Dosage: 169.4 MILLIGRAM, Q2WK
     Route: 042
     Dates: start: 20210528
  2. INVESTIGATIONAL PRODUCT [Suspect]
     Active Substance: INVESTIGATIONAL PRODUCT
     Indication: Glioblastoma
     Dosage: 1.2 MILLIGRAM, Q2WK
     Route: 058
     Dates: start: 20210528
  3. NIVOLUMAB\RELATLIMAB-RMBW [Suspect]
     Active Substance: NIVOLUMAB\RELATLIMAB-RMBW
     Indication: Glioblastoma
     Dosage: 169.4 MILLIGRAM, Q2WK
     Route: 042
     Dates: start: 20210528
  4. OMEPRAZOLE [Concomitant]
     Active Substance: OMEPRAZOLE
     Indication: Prophylaxis
     Dosage: 20 MILLIGRAM, QD
     Route: 048
     Dates: start: 2010
  5. DEXAMETHASONE [Concomitant]
     Active Substance: DEXAMETHASONE
     Indication: Nervous system disorder
     Dosage: 2 MILLIGRAM, QD
     Route: 048
     Dates: start: 20201210
  6. SULFAMETHOXAZOLE\TRIMETHOPRIM [Concomitant]
     Active Substance: SULFAMETHOXAZOLE\TRIMETHOPRIM
     Indication: Nervous system disorder
     Dosage: 800 MG EVERY 48 HOURS
     Route: 048
     Dates: start: 20201210
  7. LEUCOVORIN CALCIUM [Concomitant]
     Active Substance: LEUCOVORIN CALCIUM
     Indication: Nervous system disorder
     Dosage: 1 DOSAGE FORM EVERY 48 HOURS
     Route: 048
     Dates: start: 20201211
  8. BROMAZEPAM [Concomitant]
     Active Substance: BROMAZEPAM
     Indication: Insomnia
     Dosage: 1.5 MILLIGRAM, QD
     Route: 048
     Dates: start: 2010
  9. PRIMPERAN [Concomitant]
     Active Substance: METOCLOPRAMIDE HYDROCHLORIDE
     Indication: Illness
     Dosage: 10 MILLIGRAM, PRN
     Route: 048
     Dates: start: 202011
  10. ONDANSETRON [Concomitant]
     Active Substance: ONDANSETRON
     Indication: Illness
     Dosage: 8 MILLIGRAM, PRN
     Route: 048
     Dates: start: 202011
  11. NAPROXEN [Concomitant]
     Active Substance: NAPROXEN
     Indication: Back pain
     Dosage: 550 MILLIGRAM, BID
     Route: 048
     Dates: start: 20210511
  12. NAPROXEN [Concomitant]
     Active Substance: NAPROXEN
     Indication: Musculoskeletal pain
  13. IBUPROFEN [Concomitant]
     Active Substance: IBUPROFEN
     Indication: Pain
     Dosage: 600 MG EVERY 8 HOURS AS NEEDED
     Route: 048
     Dates: start: 2010
  14. ROBAXIN [Concomitant]
     Active Substance: METHOCARBAMOL
     Indication: Back pain
     Dosage: 500 MG EVERY 0.3 DAYS
     Route: 048
     Dates: start: 20210511
  15. ROBAXIN [Concomitant]
     Active Substance: METHOCARBAMOL
     Indication: Musculoskeletal pain
  16. ATORVASTATIN [Concomitant]
     Active Substance: ATORVASTATIN
     Indication: Dyslipidaemia
     Dosage: 10 MILLIGRAM, QD
     Route: 048
     Dates: start: 2000
  17. LEVETIRACETAM [Concomitant]
     Active Substance: LEVETIRACETAM
     Indication: Nervous system disorder
     Dosage: EVERY 0.5 DAYS
     Route: 048
     Dates: start: 202008

REACTIONS (1)
  - Neurological decompensation [Recovered/Resolved]

NARRATIVE: CASE EVENT DATE: 20210529
